FAERS Safety Report 5558987-X (Version None)
Quarter: 2007Q4

REPORT INFORMATION
  Report Type: 
  Country: None (occurrence: None)
  Receive Date: 20071214
  Receipt Date: 20070913
  Transmission Date: 20080405
  Serious: No
  Sender: FDA-Public Use
  Company Number: US-ABBOTT-07P-163-0417104-00

PATIENT
  Sex: Female
  Weight: 68.1 kg

DRUGS (6)
  1. HUMIRA [Suspect]
     Indication: PSORIASIS
     Route: 058
  2. HUMIRA [Suspect]
     Route: 058
     Dates: start: 20050101
  3. LOTREL [Concomitant]
     Indication: HYPERTENSION
  4. ESTRATEST H.S. [Concomitant]
     Indication: HORMONE REPLACEMENT THERAPY
  5. PROGESTERONE [Concomitant]
     Indication: HORMONE REPLACEMENT THERAPY
  6. ROPINIROLE HCL [Concomitant]
     Indication: RESTLESS LEGS SYNDROME

REACTIONS (2)
  - INJECTION SITE IRRITATION [None]
  - PROCEDURAL COMPLICATION [None]
